FAERS Safety Report 7503381-5 (Version None)
Quarter: 2011Q2

REPORT INFORMATION
  Report Type: 
  Country: None (occurrence: None)
  Receive Date: 20110525
  Receipt Date: 20110518
  Transmission Date: 20111010
  Serious: Yes (Hospitalization)
  Sender: FDA-Public Use
  Company Number: A0927824A

PATIENT
  Age: 32 Year
  Sex: Male

DRUGS (4)
  1. AMLODIPINE [Concomitant]
  2. CLONIDINE [Concomitant]
  3. PAXIL [Suspect]
     Route: 048
     Dates: start: 20090501, end: 20101001
  4. CALCITRIOL [Concomitant]

REACTIONS (6)
  - HEADACHE [None]
  - NAUSEA [None]
  - PAIN [None]
  - THROMBOSIS [None]
  - HYPERTENSION [None]
  - RENAL FAILURE [None]
